FAERS Safety Report 6247671-5 (Version None)
Quarter: 2009Q2

REPORT INFORMATION
  Report Type: 
  Country: None (occurrence: None)
  Receive Date: 20090626
  Receipt Date: 20090616
  Transmission Date: 20091009
  Serious: Yes (Hospitalization, Other)
  Sender: FDA-Public Use
  Company Number: EG-ELI_LILLY_AND_COMPANY-EG200906003835

PATIENT
  Sex: Female
  Weight: 80 kg

DRUGS (3)
  1. ATOMOXETINE HCL [Suspect]
     Indication: ATTENTION DEFICIT/HYPERACTIVITY DISORDER
     Dosage: 80 MG, UNK
     Route: 048
     Dates: start: 20080825, end: 20090602
  2. CORTISONE [Concomitant]
     Indication: VASCULITIS
     Dosage: 60 MG, DAILY (1/D)
  3. ACETAMINOPHEN [Concomitant]
     Indication: NASOPHARYNGITIS
     Dosage: UNK UNK, DAILY (1/D)

REACTIONS (8)
  - ABDOMINAL PAIN [None]
  - ALLERGIC COUGH [None]
  - BLOOD PRESSURE INCREASED [None]
  - BLOOD URINE PRESENT [None]
  - EPISTAXIS [None]
  - NASOPHARYNGITIS [None]
  - PETECHIAE [None]
  - RHINITIS [None]
